FAERS Safety Report 6091199-2 (Version None)
Quarter: 2009Q1

REPORT INFORMATION
  Report Type: 
  Country: None (occurrence: None)
  Receive Date: 20090225
  Receipt Date: 20090220
  Transmission Date: 20090719
  Serious: Yes (Hospitalization)
  Sender: FDA-Public Use
  Company Number: GR-BAYER-200913352GPV

PATIENT
  Age: 28 Year
  Sex: Female

DRUGS (2)
  1. CIPROFLOXACIN HCL [Suspect]
     Indication: URINARY TRACT INFECTION
     Dosage: UNIT DOSE: 500 MG
     Route: 048
     Dates: start: 20090131, end: 20090203
  2. AMOXIL [Concomitant]
     Indication: OROPHARYNGEAL PAIN
     Route: 048
     Dates: start: 20090114, end: 20090116

REACTIONS (5)
  - ARTHRITIS [None]
  - GASTROINTESTINAL HAEMORRHAGE [None]
  - NAUSEA [None]
  - PYREXIA [None]
  - VASCULITIC RASH [None]
